FAERS Safety Report 18801251 (Version 1)
Quarter: 2021Q1

REPORT INFORMATION
  Report Type: Spontaneous
  Country: US (occurrence: US)
  Receive Date: 20210128
  Receipt Date: 20210128
  Transmission Date: 20210419
  Serious: Yes (Death, Life-Threatening, Hospitalization, Other)
  Sender: FDA-Public Use
  Company Number: US-GRANULES-US-2021GRALIT00049

PATIENT
  Age: 31 Year
  Sex: Male

DRUGS (2)
  1. IRON SULPHATE [Suspect]
     Active Substance: FERROUS SULFATE ANHYDROUS
     Indication: INTENTIONAL OVERDOSE
     Route: 048
  2. ACETAMINOPHEN. [Suspect]
     Active Substance: ACETAMINOPHEN
     Indication: PRODUCT USED FOR UNKNOWN INDICATION
     Route: 048

REACTIONS (11)
  - Vomiting [Fatal]
  - Hypotension [Fatal]
  - Acute hepatic failure [Fatal]
  - Toxicity to various agents [Fatal]
  - Lethargy [Fatal]
  - Acidosis [Fatal]
  - Haemodynamic instability [Fatal]
  - Intentional overdose [Fatal]
  - Unresponsive to stimuli [Fatal]
  - Abdominal pain [Fatal]
  - Haematemesis [Fatal]
